FAERS Safety Report 6215793-0 (Version None)
Quarter: 2009Q2

REPORT INFORMATION
  Report Type: 
  Country: None (occurrence: None)
  Receive Date: 20090603
  Receipt Date: 20090518
  Transmission Date: 20091009
  Serious: Yes (Death)
  Sender: FDA-Public Use
  Company Number: RU-GENENTECH-283292

PATIENT
  Sex: Female
  Weight: 70 kg

DRUGS (3)
  1. TNKASE [Suspect]
     Indication: ACUTE MYOCARDIAL INFARCTION
     Dosage: 35 MG, X1
     Route: 040
     Dates: start: 20090512, end: 20090512
  2. CLOPIDOGREL [Suspect]
     Indication: MYOCARDIAL INFARCTION
     Dosage: 300 MG, X1
     Route: 048
     Dates: start: 20090512, end: 20090512
  3. ENOXAPARIN SODIUM [Suspect]
     Indication: MYOCARDIAL INFARCTION
     Dosage: 100 MG, X1
     Route: 058
     Dates: start: 20090512, end: 20090512

REACTIONS (1)
  - HAEMORRHAGIC STROKE [None]
